FAERS Safety Report 5332551-X (Version None)
Quarter: 2007Q2

REPORT INFORMATION
  Report Type: 
  Country: None (occurrence: None)
  Receive Date: 20070523
  Receipt Date: 20070514
  Transmission Date: 20071010
  Serious: Yes (Other)
  Sender: FDA-Public Use
  Company Number: CA-SHR-CA-2007-013528

PATIENT
  Age: 55 Year
  Sex: Female
  Weight: 68 kg

DRUGS (2)
  1. BETASERON [Suspect]
     Indication: RELAPSING-REMITTING MULTIPLE SCLEROSIS
     Dosage: 8 MIU, EVERY 2D
     Route: 058
     Dates: start: 19990106
  2. SYNTHROID [Concomitant]
     Indication: HYPOTHYROIDISM
     Dosage: .1 MG, UNK
     Route: 048
     Dates: start: 20070308

REACTIONS (4)
  - HYPOTHYROIDISM [None]
  - INJECTION SITE INDURATION [None]
  - INJECTION SITE MASS [None]
  - THYROID NEOPLASM [None]
